FAERS Safety Report 21473411 (Version 1)
Quarter: 2022Q4

REPORT INFORMATION
  Report Type: Spontaneous
  Country: US (occurrence: None)
  Receive Date: 20221014
  Receipt Date: 20221014
  Transmission Date: 20230113
  Serious: Yes (Other)
  Sender: FDA-Public Use
  Company Number: None

PATIENT
  Age: 69 Year
  Sex: Female
  Weight: 56.7 kg

DRUGS (2)
  1. USTEKINUMAB [Suspect]
     Active Substance: USTEKINUMAB
     Indication: Psoriasis
     Dates: start: 20220922, end: 20221014
  2. risakizumab-rzaa [Concomitant]

REACTIONS (2)
  - Photosensitivity reaction [None]
  - Photosensitivity reaction [None]

NARRATIVE: CASE EVENT DATE: 20221014
